FAERS Safety Report 4360975-6 (Version None)
Quarter: 2004Q2

REPORT INFORMATION
  Report Type: 
  Country: None (occurrence: None)
  Receive Date: 20040517
  Receipt Date: 20040429
  Transmission Date: 20050107
  Serious: No
  Sender: FDA-Public Use
  Company Number: DSA_23971_2004

PATIENT
  Age: 79 Year
  Sex: Female

DRUGS (10)
  1. ENALAPRIL MALEATE [Suspect]
     Indication: HYPERTENSION
     Dosage: 20 MG QD PO
     Route: 048
     Dates: start: 20040108, end: 20040114
  2. ENALAPRIL MALEATE [Suspect]
     Indication: HYPERTENSION
     Dosage: 10 MG DAY PO
     Route: 048
     Dates: start: 20040115, end: 20040301
  3. ENALAPRIL MALEATE [Suspect]
     Indication: HYPERTENSION
     Dosage: 20 MG Q DAY PO
     Route: 048
     Dates: start: 20040301
  4. DIGOXIN [Concomitant]
  5. AMIODARONE HCL [Concomitant]
  6. FUROSEMIDE [Concomitant]
  7. FLUINDIONE [Concomitant]
  8. LEVOTHYROXINE SODIUM [Concomitant]
  9. CELIPROLOL HYDROCHLORIDE [Concomitant]
  10. INSULIN [Concomitant]

REACTIONS (3)
  - CARDIAC FAILURE CONGESTIVE [None]
  - HYPOTENSION [None]
  - SYNCOPE [None]
